FAERS Safety Report 9444532 (Version 1)
Quarter: 2013Q3

REPORT INFORMATION
  Report Type: Spontaneous
  Country: US (occurrence: None)
  Receive Date: 20130805
  Receipt Date: 20130805
  Transmission Date: 20140515
  Serious: Yes (Hospitalization)
  Sender: FDA-Public Use
  Company Number: IPC201307-000293

PATIENT
  Age: 50 Year
  Sex: Male

DRUGS (3)
  1. HYDROCHLOROTHIAZIDE [Suspect]
  2. AMLODIPINE [Suspect]
  3. LISINOPRIL [Suspect]

REACTIONS (13)
  - Shock [None]
  - Respiratory failure [None]
  - Renal failure [None]
  - Toxicity to various agents [None]
  - Hypokalaemia [None]
  - Staphylococcal bacteraemia [None]
  - Pericardial effusion [None]
  - Ejection fraction decreased [None]
  - Hypophosphataemia [None]
  - Suicide attempt [None]
  - Intentional overdose [None]
  - Depressed level of consciousness [None]
  - Continuous haemodiafiltration [None]
